FAERS Safety Report 14090644 (Version 2)
Quarter: 2019Q1

REPORT INFORMATION
  Report Type: Spontaneous
  Country: US (occurrence: US)
  Receive Date: 20171015
  Receipt Date: 20190128
  Transmission Date: 20190417
  Serious: No
  Sender: FDA-Public Use
  Company Number: US-SA-2017SA135864

PATIENT
  Age: 50 Year
  Sex: Female

DRUGS (2)
  1. AUBAGIO [Suspect]
     Active Substance: TERIFLUNOMIDE
     Indication: MULTIPLE SCLEROSIS
     Dosage: UNK
     Route: 048
     Dates: start: 201705
  2. AUBAGIO [Suspect]
     Active Substance: TERIFLUNOMIDE
     Dosage: UNK

REACTIONS (4)
  - Palpitations [Unknown]
  - Pain [Unknown]
  - Anxiety [Unknown]
  - Product dose omission [Unknown]

NARRATIVE: CASE EVENT DATE: 20170714
